FAERS Safety Report 11734172 (Version 1)
Quarter: 2015Q4

REPORT INFORMATION
  Report Type: Spontaneous
  Country: PL (occurrence: PL)
  Receive Date: 20151113
  Receipt Date: 20151113
  Transmission Date: 20160304
  Serious: Yes (Other)
  Sender: FDA-Public Use
  Company Number: PL-ACTAVIS-2015-23856

PATIENT
  Age: 37 Year
  Sex: Female

DRUGS (2)
  1. LEVOSERT [Suspect]
     Active Substance: LEVONORGESTREL
     Indication: ADENOMYOSIS
     Dosage: 20 MCG, DAILY
     Route: 015
     Dates: start: 20150918, end: 20151019
  2. LEVOSERT [Suspect]
     Active Substance: LEVONORGESTREL
     Indication: OFF LABEL USE

REACTIONS (3)
  - Device expulsion [Recovered/Resolved]
  - Off label use [Recovered/Resolved]
  - Haemorrhage [Recovered/Resolved]

NARRATIVE: CASE EVENT DATE: 20151019
